FAERS Safety Report 25538503 (Version 1)
Quarter: 2025Q3

REPORT INFORMATION
  Report Type: Report from Study
  Country: US (occurrence: US)
  Receive Date: 20250710
  Receipt Date: 20250710
  Transmission Date: 20251020
  Serious: Yes (Death, Other)
  Sender: TAKEDA
  Company Number: US-TAKEDA-2024TUS035653

PATIENT
  Sex: Male

DRUGS (7)
  1. IXAZOMIB [Suspect]
     Active Substance: IXAZOMIB
     Indication: Plasma cell myeloma
  2. IXAZOMIB [Suspect]
     Active Substance: IXAZOMIB
  3. IXAZOMIB [Suspect]
     Active Substance: IXAZOMIB
  4. FENTANYL [Suspect]
     Active Substance: FENTANYL
     Indication: Pain
  5. DEXAMETHASONE [Concomitant]
     Active Substance: DEXAMETHASONE
  6. Dulcolax [Concomitant]
  7. PERCOCET [Concomitant]
     Active Substance: ACETAMINOPHEN\OXYCODONE HYDROCHLORIDE

REACTIONS (11)
  - Death [Fatal]
  - Glassy eyes [Unknown]
  - Vitamin B12 decreased [Unknown]
  - Feeling abnormal [Unknown]
  - Abdominal pain upper [Unknown]
  - Fatigue [Not Recovered/Not Resolved]
  - Back pain [Unknown]
  - Herpes zoster [Recovering/Resolving]
  - Rash [Not Recovered/Not Resolved]
  - Constipation [Unknown]
  - Malaise [Unknown]
